FAERS Safety Report 9319082 (Version 1)
Quarter: 2013Q2

REPORT INFORMATION
  Report Type: Spontaneous
  Country: FR (occurrence: FR)
  Receive Date: 20130530
  Receipt Date: 20130530
  Transmission Date: 20140414
  Serious: Yes (Hospitalization)
  Sender: FDA-Public Use
  Company Number: FR-EISAI INC-E2090-02660-SPO-FR

PATIENT
  Age: 31 Year
  Sex: Male

DRUGS (6)
  1. ZONEGRAN [Suspect]
     Indication: EPILEPSY
     Route: 048
     Dates: start: 201301, end: 201303
  2. ZONEGRAN [Suspect]
     Dosage: 200 MG DAILY
     Route: 048
     Dates: start: 201303
  3. TOPIRAMATE [Suspect]
     Indication: EPILEPSY
     Route: 048
  4. URBANYL [Suspect]
     Indication: EPILEPSY
     Route: 048
  5. CETIRIZINE [Suspect]
     Indication: HYPERSENSITIVITY
     Route: 048
  6. LACTULOSE [Concomitant]

REACTIONS (2)
  - Persecutory delusion [Not Recovered/Not Resolved]
  - Hallucination [Not Recovered/Not Resolved]
